FAERS Safety Report 11159533 (Version 3)
Quarter: 2015Q4

REPORT INFORMATION
  Report Type: Report from Study
  Country: US (occurrence: US)
  Receive Date: 20150603
  Receipt Date: 20151007
  Transmission Date: 20160304
  Serious: Yes (Other)
  Sender: FDA-Public Use
  Company Number: US-SA-2014SA047878

PATIENT
  Age: 57 Year
  Sex: Female

DRUGS (3)
  1. SILICON RESIN [Concomitant]
  2. LEVOTHYROXINE. [Concomitant]
     Active Substance: LEVOTHYROXINE
     Indication: THYROID DISORDER
  3. AUBAGIO [Suspect]
     Active Substance: TERIFLUNOMIDE
     Indication: MULTIPLE SCLEROSIS
     Route: 048
     Dates: start: 20140407

REACTIONS (18)
  - Faeces soft [Recovered/Resolved]
  - Fatigue [Unknown]
  - Dyspepsia [Recovering/Resolving]
  - Pruritus [Not Recovered/Not Resolved]
  - Abdominal discomfort [Recovered/Resolved]
  - Dysgraphia [Unknown]
  - Sensory loss [Unknown]
  - Body temperature increased [Recovering/Resolving]
  - Paraesthesia [Recovering/Resolving]
  - Diarrhoea [Recovering/Resolving]
  - Hypoaesthesia [Unknown]
  - Meningitis [Not Recovered/Not Resolved]
  - Condition aggravated [Not Recovered/Not Resolved]
  - Erythema [Not Recovered/Not Resolved]
  - Therapeutic response unexpected [Unknown]
  - Tremor [Recovering/Resolving]
  - Aphasia [Unknown]
  - Malaise [Unknown]

NARRATIVE: CASE EVENT DATE: 2014
